FAERS Safety Report 7508449-5 (Version None)
Quarter: 2011Q2

REPORT INFORMATION
  Report Type: 
  Country: None (occurrence: None)
  Receive Date: 20110527
  Receipt Date: 20110513
  Transmission Date: 20111010
  Serious: Yes (Life-Threatening)
  Sender: FDA-Public Use
  Company Number: US-MYLANLABS-2011S1009990

PATIENT
  Age: 13 Year
  Sex: Female

DRUGS (1)
  1. AMITRIPTYLINE HCL [Suspect]
     Indication: OVERDOSE
     Route: 048

REACTIONS (8)
  - COMA [None]
  - CONVULSION [None]
  - CARDIAC ARREST [None]
  - PANCREATITIS [None]
  - THROMBOPHLEBITIS [None]
  - TORSADE DE POINTES [None]
  - OVERDOSE [None]
  - RESPIRATORY DEPRESSION [None]
